FAERS Safety Report 9001293 (Version 1)
Quarter: 2013Q1

REPORT INFORMATION
  Report Type: Spontaneous
  Country: GB (occurrence: GB)
  Receive Date: 20130107
  Receipt Date: 20130107
  Transmission Date: 20140127
  Serious: Yes (Disabling)
  Sender: FDA-Public Use
  Company Number: GB-MYLANLABS-2012S1026530

PATIENT
  Age: 76 Year
  Sex: Male

DRUGS (3)
  1. LEVETIRACETAM [Suspect]
     Indication: POST-TRAUMATIC EPILEPSY
     Route: 065
  2. CLOBAZAM [Concomitant]
     Indication: POST-TRAUMATIC EPILEPSY
     Route: 065
  3. SODIUM VALPROATE [Concomitant]
     Indication: POST-TRAUMATIC EPILEPSY
     Route: 065

REACTIONS (7)
  - Circadian rhythm sleep disorder [Recovered/Resolved]
  - Agitation [Recovering/Resolving]
  - Aggression [Recovered/Resolved]
  - Confusional state [Unknown]
  - Disorientation [Unknown]
  - Aphasia [Unknown]
  - Restlessness [Unknown]
